FAERS Safety Report 24766343 (Version 1)
Quarter: 2024Q4

REPORT INFORMATION
  Report Type: Spontaneous
  Country: DE (occurrence: DE)
  Receive Date: 20241223
  Receipt Date: 20241223
  Transmission Date: 20250114
  Serious: Yes (Life-Threatening, Hospitalization)
  Sender: PFIZER
  Company Number: None

PATIENT
  Age: 46 Year
  Sex: Female
  Weight: 72 kg

DRUGS (3)
  1. PANTOPRAZOLE [Suspect]
     Active Substance: PANTOPRAZOLE
     Indication: Gastritis
     Dosage: 40 MILLIGRAM, BID
     Route: 048
     Dates: start: 20030520, end: 20030526
  2. AMOXICILLIN TRIHYDRATE [Suspect]
     Active Substance: AMOXICILLIN
     Indication: Gastritis
     Dosage: 1000 MILLIGRAM, BID
     Route: 048
     Dates: start: 20030520, end: 20030526
  3. CLARITHROMYCIN [Suspect]
     Active Substance: CLARITHROMYCIN
     Indication: Gastritis
     Dosage: 1000 MILLIGRAM, QD
     Route: 048
     Dates: start: 20030520, end: 20030526

REACTIONS (17)
  - Hepatic necrosis [Recovering/Resolving]
  - Ocular icterus [Recovering/Resolving]
  - Chromaturia [Recovering/Resolving]
  - Alanine aminotransferase increased [Recovering/Resolving]
  - Blood alkaline phosphatase increased [Recovering/Resolving]
  - Aspartate aminotransferase increased [Recovering/Resolving]
  - Blood bilirubin increased [Recovering/Resolving]
  - Gamma-glutamyltransferase increased [Recovering/Resolving]
  - International normalised ratio increased [Recovering/Resolving]
  - Coagulation time prolonged [Recovering/Resolving]
  - Vomiting [Recovering/Resolving]
  - Nausea [Recovering/Resolving]
  - Malaise [Recovering/Resolving]
  - Blood lactate dehydrogenase increased [Unknown]
  - Jaundice [Unknown]
  - Alopecia areata [Unknown]
  - Antinuclear antibody positive [Unknown]

NARRATIVE: CASE EVENT DATE: 20030101
